FAERS Safety Report 18519097 (Version 1)
Quarter: 2020Q4

REPORT INFORMATION
  Report Type: Report from Study
  Country: CN (occurrence: CN)
  Receive Date: 20201118
  Receipt Date: 20201118
  Transmission Date: 20210114
  Serious: Yes (Hospitalization)
  Sender: FDA-Public Use
  Company Number: CN-PFIZER INC-2020444118

PATIENT
  Age: 63 Year
  Sex: Female
  Weight: 60 kg

DRUGS (23)
  1. GRANULOCYTE COLONY STIMULATING FACTOR [Concomitant]
     Active Substance: GRANULOCYTE COLONY-STIMULATING FACTOR NOS
     Dosage: UNK
     Dates: start: 20200411, end: 20200411
  2. CLINDAMYCIN HYDROCHLORIDE. [Concomitant]
     Active Substance: CLINDAMYCIN HYDROCHLORIDE
     Dosage: UNK
     Dates: start: 20200427, end: 20200508
  3. ALPRAZOLAM. [Concomitant]
     Active Substance: ALPRAZOLAM
     Dosage: UNK
     Dates: start: 20200419
  4. FILGRASTIM [Suspect]
     Active Substance: FILGRASTIM
     Dosage: 300 UG, CYCLIC (ONCE IN A 2 WEEKS)
     Route: 058
     Dates: start: 20200119, end: 20200120
  5. DICLOFENAC SODIUM. [Concomitant]
     Active Substance: DICLOFENAC SODIUM
     Dosage: 50 MG
     Dates: start: 20200412, end: 20200414
  6. LEVOFLOXACIN LACTATE/SODIUM CHLORIDE [Concomitant]
     Dosage: UNK
     Dates: start: 20200427, end: 20200508
  7. SODIUM CHLORIDE. [Concomitant]
     Active Substance: SODIUM CHLORIDE
     Dosage: UNK
     Dates: start: 20200411, end: 20200414
  8. FILGRASTIM [Suspect]
     Active Substance: FILGRASTIM
     Dosage: 300 UG, CYCLIC (ONCE IN A 2 WEEKS)
     Route: 058
     Dates: start: 20200113, end: 20200113
  9. FILGRASTIM [Suspect]
     Active Substance: FILGRASTIM
     Dosage: 300 UG, CYCLIC (ONCE IN A 2 WEEKS)
     Route: 058
     Dates: start: 20200403, end: 20200406
  10. DEXAMETHASONE. [Concomitant]
     Active Substance: DEXAMETHASONE
     Dosage: UNK
     Dates: start: 20200412, end: 20200412
  11. EPIRUBICIN HCL [Suspect]
     Active Substance: EPIRUBICIN HYDROCHLORIDE
     Indication: TRIPLE NEGATIVE BREAST CANCER
     Dosage: 90 MG/M2, CYCLIC (ONCE IN A 2 WEEKS)
     Route: 042
     Dates: start: 20200106, end: 20200404
  12. CEFRADINE [Concomitant]
     Active Substance: CEPHRADINE
     Dosage: 6 G
     Dates: start: 20200411
  13. PANTOPRAZOLE SODIUM. [Concomitant]
     Active Substance: PANTOPRAZOLE SODIUM
     Dosage: 40 MG
     Dates: start: 20200411, end: 20200423
  14. PROMETHAZINE HYDROCHLORIDE. [Concomitant]
     Active Substance: PROMETHAZINE HYDROCHLORIDE
     Dosage: UNK
     Dates: start: 20200415, end: 20200415
  15. FUSIDIC ACID [Concomitant]
     Active Substance: FUSIDIC ACID
     Dosage: UNK
     Dates: start: 20200417, end: 20200417
  16. CYCLOPHOSPHAMIDE. [Suspect]
     Active Substance: CYCLOPHOSPHAMIDE
     Dosage: 600 MG/M2, CYCLIC (ONCE IN A 2 WEEKS)
     Route: 042
     Dates: start: 20200106, end: 20200404
  17. MONTMORILLONITE [Concomitant]
     Active Substance: MONTMORILLONITE
     Dosage: UNK
     Dates: start: 20200412, end: 20200412
  18. ATEZOLIZUMAB. [Suspect]
     Active Substance: ATEZOLIZUMAB
     Dosage: 840 MG, CYCLIC (ONCE IN A 2 WEEKS)
     Route: 042
     Dates: start: 20191012, end: 20200404
  19. GRANULOCYTE COLONY STIMULATING FACTOR [Concomitant]
     Active Substance: GRANULOCYTE COLONY-STIMULATING FACTOR NOS
     Dosage: UNK
     Dates: start: 20200412, end: 20200418
  20. ERYTHROPOIETIN HUMAN [Concomitant]
     Active Substance: ERYTHROPOIETIN
     Dosage: UNK
     Dates: start: 20200417, end: 20200423
  21. PACLITAXEL. [Suspect]
     Active Substance: PACLITAXEL
     Indication: TRIPLE NEGATIVE BREAST CANCER
     Dosage: 80 MG/M2, WEEKLY
     Route: 042
     Dates: start: 20191012, end: 20191228
  22. CILASTATIN SODIUM/IMIPENEM [Concomitant]
     Active Substance: CILASTATIN SODIUM\IMIPENEM
     Dosage: UNK
     Dates: start: 20200412, end: 20200423
  23. THROMBOPOIETIN [Concomitant]
     Active Substance: THROMBOPOIETIN
     Dosage: UNK
     Dates: start: 20200415, end: 20200422

REACTIONS (2)
  - Anal abscess [Recovered/Resolved with Sequelae]
  - Febrile neutropenia [Recovered/Resolved]

NARRATIVE: CASE EVENT DATE: 20200410
